FAERS Safety Report 19172274 (Version 2)
Quarter: 2021Q2

REPORT INFORMATION
  Report Type: Spontaneous
  Country: FR (occurrence: FR)
  Receive Date: 20210423
  Receipt Date: 20210505
  Transmission Date: 20210717
  Serious: Yes (Hospitalization, Other)
  Sender: FDA-Public Use
  Company Number: FR-AUROBINDO-AUR-APL-2021-016870

PATIENT
  Age: 61 Year
  Sex: Male
  Weight: 87.5 kg

DRUGS (7)
  1. UVEDOSE [Suspect]
     Active Substance: CHOLECALCIFEROL
     Indication: VITAMIN D DEFICIENCY
     Dosage: 1 DOSAGE FORM 1 MONTH
     Route: 048
     Dates: end: 20210331
  2. ESOMEPRAZOLE. [Suspect]
     Active Substance: ESOMEPRAZOLE MAGNESIUM
     Indication: PROPHYLAXIS AGAINST GASTROINTESTINAL ULCER
     Dosage: 40 MILLIGRAM, ONCE A DAY
     Route: 048
     Dates: end: 20210331
  3. NAPROXEN. [Suspect]
     Active Substance: NAPROXEN
     Indication: RHEUMATOID ARTHRITIS
     Dosage: 1100 MILLIGRAM, ONCE A DAY
     Route: 048
     Dates: end: 20210331
  4. IMETH [Suspect]
     Active Substance: METHOTREXATE SODIUM
     Indication: RHEUMATOID ARTHRITIS
     Dosage: 1 DOSAGE FORM, EVERY WEEK
     Route: 058
     Dates: start: 20201125, end: 20210331
  5. ATENOLOL. [Suspect]
     Active Substance: ATENOLOL
     Indication: HYPERTENSION
     Dosage: 50 MILLIGRAM, ONCE A DAY
     Route: 048
  6. LAMALINE (ATROPA BELLADONNA EXTRACT/CAFFEINE/PAPAVER SOMNIFERUM TINCTURE/PARACETAMOL) [Suspect]
     Active Substance: ACETAMINOPHEN\BELLADONNA LEAF\CAFFEINE\OPIUM
     Indication: PAIN
     Dosage: 6 DOSAGE FORM, ONCE A DAY
     Route: 048
     Dates: end: 20210331
  7. SPECIAFOLDINE [Suspect]
     Active Substance: FOLIC ACID
     Indication: PROPHYLAXIS
     Dosage: 3 DOSAGE FORM, EVERY WEEK, 2 DAYS BEFORE TAKING IMETH
     Route: 048
     Dates: start: 202011, end: 20210331

REACTIONS (3)
  - Dyspnoea [Recovered/Resolved]
  - Interstitial lung disease [Recovered/Resolved]
  - Cough [Recovered/Resolved]

NARRATIVE: CASE EVENT DATE: 202103
